FAERS Safety Report 8485619-3 (Version None)
Quarter: 2012Q3

REPORT INFORMATION
  Report Type: 
  Country: None (occurrence: None)
  Receive Date: 20120703
  Receipt Date: 20120627
  Transmission Date: 20120928
  Serious: Yes (Life-Threatening, Hospitalization)
  Sender: FDA-Public Use
  Company Number: JP-JNJFOC-20120400652

PATIENT
  Sex: Male
  Weight: 61 kg

DRUGS (12)
  1. METHOTREXATE [Concomitant]
     Route: 048
     Dates: start: 20100723, end: 20120321
  2. ISONIAZID [Concomitant]
     Indication: PROPHYLAXIS
     Route: 048
     Dates: start: 20100630, end: 20120321
  3. MUCOSTA [Concomitant]
     Route: 048
     Dates: start: 20100630, end: 20101112
  4. SIMPONI [Suspect]
     Route: 058
     Dates: start: 20120204
  5. RABEPRAZOLE SODIUM [Concomitant]
     Indication: GASTRITIS
     Route: 048
     Dates: start: 20110916, end: 20111110
  6. SOLETON [Concomitant]
     Indication: RHEUMATOID ARTHRITIS
     Route: 048
     Dates: start: 20100630, end: 20101112
  7. SIMPONI [Suspect]
     Indication: RHEUMATOID ARTHRITIS
     Route: 058
     Dates: start: 20120106
  8. BENFOTIAMINE [Concomitant]
     Indication: PROPHYLAXIS
     Route: 048
     Dates: start: 20100630, end: 20120321
  9. FOLIC ACID [Concomitant]
     Indication: PROPHYLAXIS
     Dates: start: 20100709, end: 20120321
  10. SIMPONI [Suspect]
     Route: 058
     Dates: start: 20120302, end: 20120324
  11. METHOTREXATE [Concomitant]
     Indication: RHEUMATOID ARTHRITIS
     Route: 048
     Dates: start: 20100630, end: 20100722
  12. INFLIXIMAB [Suspect]
     Indication: RHEUMATOID ARTHRITIS
     Route: 042
     Dates: start: 20100709, end: 20111111

REACTIONS (1)
  - GASTRIC CANCER [None]
